FAERS Safety Report 10920143 (Version 2)
Quarter: 2015Q1

REPORT INFORMATION
  Report Type: Spontaneous
  Country: GB (occurrence: GB)
  Receive Date: 20150317
  Receipt Date: 20150330
  Transmission Date: 20150721
  Serious: Yes (Other)
  Sender: FDA-Public Use
  Company Number: GB-AUROBINDO-AUR-APL-2015-02208

PATIENT

DRUGS (3)
  1. TRAMADOL 50MG CAPSULES, HARD [Suspect]
     Active Substance: TRAMADOL
     Indication: BACK PAIN
     Dosage: 50 MG, UNK
     Route: 065
  2. TRAMADOL [Suspect]
     Active Substance: TRAMADOL
     Indication: BACK PAIN
  3. TRAMADOL 50MG CAPSULES, HARD [Suspect]
     Active Substance: TRAMADOL
     Dosage: 4 DF, (TWO CAPSULES IN THE MORNING AND TWO CAPSULES AT NIGHT)
     Route: 065

REACTIONS (4)
  - Drug withdrawal syndrome [Unknown]
  - Restlessness [Recovering/Resolving]
  - Insomnia [Recovering/Resolving]
  - Pain [Unknown]
